FAERS Safety Report 24132975 (Version 2)
Quarter: 2024Q3

REPORT INFORMATION
  Report Type: Report from Study
  Country: FR (occurrence: FR)
  Receive Date: 20240724
  Receipt Date: 20240730
  Transmission Date: 20241016
  Serious: No
  Sender: SANDOZ
  Company Number: FR-SANDOZ-SDZ2024FR067438

PATIENT
  Age: 16 Year

DRUGS (1)
  1. OMNITROPE [Suspect]
     Active Substance: SOMATROPIN
     Indication: Product used for unknown indication
     Dosage: UNK
     Route: 065

REACTIONS (2)
  - Incorrect dose administered by device [Unknown]
  - Device mechanical issue [Unknown]

NARRATIVE: CASE EVENT DATE: 20240719
